FAERS Safety Report 7020209-0 (Version None)
Quarter: 2010Q3

REPORT INFORMATION
  Report Type: 
  Country: None (occurrence: None)
  Receive Date: 20100929
  Receipt Date: 20100917
  Transmission Date: 20110219
  Serious: Yes (Other)
  Sender: FDA-Public Use
  Company Number: PHHY2010JP60483

PATIENT
  Age: 77 Year
  Sex: Male

DRUGS (2)
  1. DIOVAN [Suspect]
     Indication: HYPERTENSION
     Dosage: 80MG DAILY
     Route: 048
     Dates: start: 20100906
  2. SARPOGRELATE HYDROCHLORIDE [Suspect]
     Dosage: 300MG DAILY
     Route: 048
     Dates: start: 20100906, end: 20100910

REACTIONS (2)
  - SWOLLEN TONGUE [None]
  - TOOTH DISCOLOURATION [None]
